FAERS Safety Report 4586895-X (Version None)
Quarter: 2005Q1

REPORT INFORMATION
  Report Type: 
  Country: None (occurrence: None)
  Receive Date: 20050216
  Receipt Date: 20050216
  Transmission Date: 20050727
  Serious: No
  Sender: FDA-Public Use
  Company Number: None

PATIENT
  Sex: Female

DRUGS (2)
  1. HYDROCODONE / APAP (GENERIC VICODIN ES) [Suspect]
     Indication: KNEE ARTHROPLASTY
     Dosage: 7.5 / 750
  2. HYDROCODONE / APAP (GENERIC VICODIN ES) [Suspect]
     Indication: OSTEOARTHRITIS
     Dosage: 7.5 / 750

REACTIONS (2)
  - DRUG INEFFECTIVE [None]
  - PHARMACEUTICAL PRODUCT COMPLAINT [None]
